FAERS Safety Report 14407546 (Version 1)
Quarter: 2018Q1

REPORT INFORMATION
  Report Type: Spontaneous
  Country: US (occurrence: US)
  Receive Date: 20180116
  Receipt Date: 20180116
  Transmission Date: 20180509
  Serious: Yes (Other)
  Sender: FDA-Public Use
  Company Number: None

PATIENT
  Age: 70 Year
  Sex: Male
  Weight: 79.2 kg

DRUGS (5)
  1. METOPROLOL. [Concomitant]
     Active Substance: METOPROLOL
  2. MULTIVITAMIN [Concomitant]
     Active Substance: VITAMINS
  3. WARFARIN [Concomitant]
     Active Substance: WARFARIN
  4. ATROVASTATIN CALCIUM 40MG [Suspect]
     Active Substance: ATORVASTATIN CALCIUM
     Indication: BLOOD CHOLESTEROL INCREASED
     Dosage: ?          QUANTITY:1 TABLET(S);?
     Route: 048
     Dates: start: 20141015, end: 20171102
  5. COQ10 [Concomitant]
     Active Substance: UBIDECARENONE

REACTIONS (5)
  - Anger [None]
  - Panic attack [None]
  - Muscle disorder [None]
  - Arthropathy [None]
  - Aggression [None]

NARRATIVE: CASE EVENT DATE: 20170101
